FAERS Safety Report 17440796 (Version 1)
Quarter: 2020Q1

REPORT INFORMATION
  Report Type: Spontaneous
  Country: US (occurrence: US)
  Receive Date: 20200220
  Receipt Date: 20200220
  Transmission Date: 20200409
  Serious: Yes (Other)
  Sender: FDA-Public Use
  Company Number: None

PATIENT
  Age: 81 Year
  Sex: Male
  Weight: 82.8 kg

DRUGS (17)
  1. ONDANSETRON 4MG [Concomitant]
     Active Substance: ONDANSETRON
  2. FAMOTIDINE 20MG [Concomitant]
     Active Substance: FAMOTIDINE
  3. ELIQUIS [Concomitant]
     Active Substance: APIXABAN
  4. CIALIS [Concomitant]
     Active Substance: TADALAFIL
  5. CAPECITABINE. [Suspect]
     Active Substance: CAPECITABINE
     Dates: start: 20191206
  6. LEVOLEUCOVORIN 175MG [Concomitant]
  7. FLOMAX 0.4MG [Concomitant]
  8. CAPECITABINE. [Suspect]
     Active Substance: CAPECITABINE
     Route: 048
     Dates: start: 20191206
  9. LOVENOX 120MG/0.8ML [Concomitant]
  10. PROCHLORPERAZINE. [Concomitant]
     Active Substance: PROCHLORPERAZINE
  11. AVASTIN 400MG/16ML [Concomitant]
  12. ASPIRIN 325MG [Concomitant]
     Active Substance: ASPIRIN
  13. TESTOSTERONE 1.62% [Concomitant]
  14. SIMVASTATIN 20MG [Concomitant]
     Active Substance: SIMVASTATIN
  15. OXALIPLATIN 100MG/20ML [Concomitant]
     Active Substance: OXALIPLATIN
  16. AMLODIPINE-BENZAPRIL 10-20MG [Concomitant]
  17. DEXAMETHASONE. [Concomitant]
     Active Substance: DEXAMETHASONE

REACTIONS (2)
  - Neuropathy peripheral [None]
  - Therapy cessation [None]

NARRATIVE: CASE EVENT DATE: 20200220
